FAERS Safety Report 23431260 (Version 4)
Quarter: 2024Q1

REPORT INFORMATION
  Report Type: Report from Study
  Country: ES (occurrence: ES)
  Receive Date: 20240123
  Receipt Date: 20240221
  Transmission Date: 20240409
  Serious: Yes (Death, Hospitalization, Other)
  Sender: FDA-Public Use
  Company Number: ES-GLAXOSMITHKLINE-ES2024EME008143

PATIENT

DRUGS (1)
  1. MOMELOTINIB [Suspect]
     Active Substance: MOMELOTINIB
     Indication: Product used for unknown indication
     Dosage: 200 MG
     Route: 048
     Dates: start: 20231215, end: 20240113

REACTIONS (7)
  - Renal failure [Fatal]
  - Hyperbilirubinaemia [Fatal]
  - Cholestasis [Fatal]
  - Acute leukaemia [Fatal]
  - Incarcerated hernia [Fatal]
  - Intestinal obstruction [Fatal]
  - Pneumonia necrotising [Fatal]

NARRATIVE: CASE EVENT DATE: 20240110
